FAERS Safety Report 6371568-3 (Version None)
Quarter: 2009Q3

REPORT INFORMATION
  Report Type: 
  Country: None (occurrence: None)
  Receive Date: 20090923
  Receipt Date: 20071119
  Transmission Date: 20100115
  Serious: Yes (Hospitalization)
  Sender: FDA-Public Use
  Company Number: US-ASTRAZENECA-2007UW18699

PATIENT
  Sex: Male
  Weight: 105.7 kg

DRUGS (17)
  1. SEROQUEL [Suspect]
     Indication: BIPOLAR DISORDER
     Route: 048
     Dates: start: 20010101
  2. SEROQUEL [Suspect]
     Indication: SCHIZOPHRENIA
     Route: 048
     Dates: start: 20010101
  3. SEROQUEL [Suspect]
     Indication: DEPRESSION
     Route: 048
     Dates: start: 20010101
  4. SEROQUEL [Suspect]
     Dosage: 25 MG - 900 MG
     Route: 048
     Dates: start: 20020319
  5. SEROQUEL [Suspect]
     Dosage: 25 MG - 900 MG
     Route: 048
     Dates: start: 20020319
  6. SEROQUEL [Suspect]
     Dosage: 25 MG - 900 MG
     Route: 048
     Dates: start: 20020319
  7. LISINOPRIL [Concomitant]
  8. INSULIN [Concomitant]
  9. METFORMIN HCL [Concomitant]
  10. ROCEPHIN [Concomitant]
  11. DEPAKOTE [Concomitant]
  12. CARISOPRODOL [Concomitant]
  13. LORAZEPAM [Concomitant]
  14. LOVASTATIN [Concomitant]
  15. CYCLOBENZAPRINE [Concomitant]
  16. VERAPAMIL [Concomitant]
  17. BUSPAR [Concomitant]

REACTIONS (1)
  - DIABETES MELLITUS [None]
